FAERS Safety Report 7604276-9 (Version None)
Quarter: 2011Q3

REPORT INFORMATION
  Report Type: 
  Country: None (occurrence: None)
  Receive Date: 20110712
  Receipt Date: 20110627
  Transmission Date: 20111222
  Serious: Yes (Other)
  Sender: FDA-Public Use
  Company Number: US-ARROW GEN-2011-10145

PATIENT
  Age: 16 Year
  Sex: Male

DRUGS (5)
  1. KETAMINE HCL [Suspect]
     Indication: CANCER PAIN
     Route: 041
  2. GABAPENTIN [Suspect]
     Indication: CANCER PAIN
     Dosage: 900 MG, TID
     Route: 048
  3. FENTANYL [Suspect]
     Indication: CANCER PAIN
     Route: 040
  4. NORTRIPTYLINE HCL [Suspect]
     Indication: CANCER PAIN
     Dosage: 100 MG, DAILY
     Route: 048
  5. METHADONE HCL [Suspect]
     Indication: CANCER PAIN
     Dosage: 40 MG, Q6H
     Route: 048

REACTIONS (2)
  - DRUG INEFFECTIVE [None]
  - HYPERAESTHESIA [None]
